FAERS Safety Report 9305048 (Version 1)
Quarter: 2013Q2

REPORT INFORMATION
  Report Type: Spontaneous
  Country: US (occurrence: None)
  Receive Date: 20130522
  Receipt Date: 20130522
  Transmission Date: 20140414
  Serious: No
  Sender: FDA-Public Use
  Company Number: None

PATIENT
  Age: 59 Year
  Sex: Female

DRUGS (8)
  1. NITROFURANTOIN [Suspect]
     Dates: start: 201111, end: 20120421
  2. AMLODIPINE [Concomitant]
  3. BENAZEPRIL [Concomitant]
  4. BONIVA [Concomitant]
  5. GEMFIBROZIL [Concomitant]
  6. HYDROCHLOROTHIAZIDE [Concomitant]
  7. TEGRETOL [Concomitant]
  8. NEXIUM [Concomitant]

REACTIONS (7)
  - Autoimmune hepatitis [None]
  - Platelet count decreased [None]
  - Hepatic cirrhosis [None]
  - Ascites [None]
  - Hepatic fibrosis [None]
  - Fatigue [None]
  - Drug-induced liver injury [None]
